FAERS Safety Report 7580970 (Version 2)
Quarter: 2012Q4

REPORT INFORMATION
  Report Type: 
  Country: TR (occurrence: TR)
  Receive Date: 20100910
  Receipt Date: 20121113
  Transmission Date: 20130627
  Serious: Yes (Hospitalization)
  Sender: FDA-Public Use
  Company Number: GXKR2010TR09970

PATIENT
  Age: 26 Year
  Sex: Male

DRUGS (9)
  1. QUETIAPINE [Suspect]
     Indication: FLIGHT OF IDEAS
     Dosage: 200 mg, per day
     Route: 065
  2. QUETIAPINE [Suspect]
     Indication: INSOMNIA
     Dosage: 400 mg, per day
     Route: 065
  3. QUETIAPINE [Suspect]
     Indication: DISTRACTIBILITY
  4. VALPROIC ACID [Suspect]
     Indication: FLIGHT OF IDEAS
     Dosage: 500 mg/day
     Route: 065
  5. VALPROIC ACID [Suspect]
     Indication: FLIGHT OF IDEAS
  6. VALPROIC ACID [Suspect]
     Indication: DISTRACTIBILITY
  7. LITHIUM [Concomitant]
     Indication: FLIGHT OF IDEAS
     Dosage: 1500 mg, UNK
     Route: 065
  8. LITHIUM [Concomitant]
     Indication: INSOMNIA
  9. LITHIUM [Concomitant]
     Indication: DISTRACTIBILITY

REACTIONS (5)
  - Myalgia [Recovered/Resolved]
  - Blood creatine phosphokinase increased [Recovered/Resolved]
  - Aspartate aminotransferase increased [Recovered/Resolved]
  - Alanine aminotransferase increased [Recovered/Resolved]
  - Blood lactate dehydrogenase increased [Recovered/Resolved]
